FAERS Safety Report 7939246-4 (Version None)
Quarter: 2011Q4

REPORT INFORMATION
  Report Type: 
  Country: None (occurrence: None)
  Receive Date: 20111124
  Receipt Date: 20111116
  Transmission Date: 20120403
  Serious: Yes (Other)
  Sender: FDA-Public Use
  Company Number: DE-JNJFOC-20111010172

PATIENT
  Age: 53 Year
  Sex: Female
  Weight: 64 kg

DRUGS (5)
  1. HYDROMORPHONE HCL [Concomitant]
     Route: 065
  2. OPIPRAMOL [Concomitant]
     Indication: DEPRESSION
     Route: 065
  3. REMICADE [Suspect]
     Route: 042
     Dates: start: 20111021, end: 20111021
  4. REMICADE [Suspect]
     Indication: ANKYLOSING SPONDYLITIS
     Route: 042
     Dates: start: 20110829
  5. PREDNISONE TAB [Concomitant]
     Route: 065

REACTIONS (5)
  - INFUSION RELATED REACTION [None]
  - NAUSEA [None]
  - RASH [None]
  - DYSPNOEA [None]
  - HYPOTENSION [None]
